FAERS Safety Report 9665638 (Version 1)
Quarter: 2013Q4

REPORT INFORMATION
  Report Type: Spontaneous
  Country: US (occurrence: None)
  Receive Date: 20131031
  Receipt Date: 20131031
  Transmission Date: 20140711
  Serious: Yes (Hospitalization)
  Sender: FDA-Public Use
  Company Number: None

PATIENT
  Age: 52 Year
  Sex: Male
  Weight: 109.8 kg

DRUGS (1)
  1. LISINOPRIL [Suspect]
     Indication: HYPERTENSION
     Route: 048
     Dates: start: 20060111, end: 20130908

REACTIONS (7)
  - Swelling face [None]
  - Dysphagia [None]
  - Urinary tract infection [None]
  - Abscess [None]
  - Inflammation [None]
  - Hypersensitivity [None]
  - Angioedema [None]
